FAERS Safety Report 7359335-5 (Version None)
Quarter: 2011Q1

REPORT INFORMATION
  Report Type: 
  Country: None (occurrence: None)
  Receive Date: 20110317
  Receipt Date: 20110315
  Transmission Date: 20110831
  Serious: Yes (Death)
  Sender: FDA-Public Use
  Company Number: PHHY2011US21191

PATIENT
  Sex: Male

DRUGS (6)
  1. FENTANYL [Concomitant]
     Dosage: 50 MCG/HR
  2. ENOXAPARIN [Concomitant]
     Dosage: 80/0.8 ML
  3. XELODA [Concomitant]
     Dosage: 500 MG, UNK
  4. AFINITOR [Suspect]
     Dosage: 10 MG, EVERY DAY
     Route: 048
     Dates: start: 20100701
  5. CATAPRES-TTS-1 [Concomitant]
     Dosage: 0.1/24 HR
  6. COUMADIN [Concomitant]
     Dosage: 3 MG, UNK

REACTIONS (1)
  - DEATH [None]
